FAERS Safety Report 7080783-5 (Version None)
Quarter: 2010Q4

REPORT INFORMATION
  Report Type: 
  Country: None (occurrence: None)
  Receive Date: 20101103
  Receipt Date: 20101025
  Transmission Date: 20110411
  Serious: Yes (Hospitalization)
  Sender: FDA-Public Use
  Company Number: FR-JNJFOC-20101007181

PATIENT
  Age: 42 Year
  Sex: Male

DRUGS (3)
  1. REMICADE [Suspect]
     Indication: ANKYLOSING SPONDYLITIS
     Dosage: RECEIVED HIS 16TH INFUSION ON 10-SEP-2010
     Route: 042
  2. NEXIUM [Concomitant]
  3. DOLIPRANE [Concomitant]

REACTIONS (1)
  - PULMONARY TUBERCULOSIS [None]
